FAERS Safety Report 7736760-1 (Version None)
Quarter: 2011Q3

REPORT INFORMATION
  Report Type: 
  Country: None (occurrence: None)
  Receive Date: 20110902
  Receipt Date: 20110819
  Transmission Date: 20111222
  Serious: Yes (Hospitalization)
  Sender: FDA-Public Use
  Company Number: PRAN20110005

PATIENT
  Age: 43 Year
  Sex: Female

DRUGS (1)
  1. PROPRANOLOL HYDROCHLORIDE [Suspect]
     Indication: MIGRAINE
     Dosage: 60 -MG,--1 IN -1 ORAL
     Route: 048

REACTIONS (6)
  - PHAEOCHROMOCYTOMA [None]
  - CONGESTIVE CARDIOMYOPATHY [None]
  - PRESYNCOPE [None]
  - HYPERHIDROSIS [None]
  - BLOOD PRESSURE INCREASED [None]
  - PALPITATIONS [None]
